FAERS Safety Report 4930447-6 (Version None)
Quarter: 2006Q1

REPORT INFORMATION
  Report Type: 
  Country: None (occurrence: None)
  Receive Date: 20060118
  Receipt Date: 20050608
  Transmission Date: 20060701
  Serious: No
  Sender: FDA-Public Use
  Company Number: 2005001079

PATIENT
  Sex: Female
  Weight: 53.0709 kg

DRUGS (6)
  1. TARCEVA [Suspect]
     Indication: NON-SMALL CELL LUNG CANCER
     Dosage: 150 MG (QD), ORAL
     Route: 048
  2. IRON (IRON) [Concomitant]
  3. ATENOLOL [Concomitant]
  4. TEMAZEPAM [Concomitant]
  5. LOVASTATIN [Concomitant]
  6. ALEVE [Concomitant]

REACTIONS (5)
  - ALOPECIA [None]
  - ANAEMIA [None]
  - ARTHRALGIA [None]
  - DIARRHOEA [None]
  - SHOULDER PAIN [None]
